FAERS Safety Report 19802402 (Version 1)
Quarter: 2021Q3

REPORT INFORMATION
  Report Type: Spontaneous
  Country: US (occurrence: US)
  Receive Date: 20210907
  Receipt Date: 20210907
  Transmission Date: 20211014
  Serious: No
  Sender: FDA-Public Use
  Company Number: None

PATIENT
  Sex: Male

DRUGS (13)
  1. XARELTO [Concomitant]
     Active Substance: RIVAROXABAN
  2. VITAMIN D [Concomitant]
     Active Substance: VITAMIN D NOS
  3. OMEPRAZOLE. [Concomitant]
     Active Substance: OMEPRAZOLE
  4. POTASSIUM CITRATE. [Concomitant]
     Active Substance: POTASSIUM CITRATE
  5. PREDNISONE. [Concomitant]
     Active Substance: PREDNISONE
  6. IRON [Concomitant]
     Active Substance: IRON
  7. LUPRON [Concomitant]
     Active Substance: LEUPROLIDE ACETATE
  8. PRAVASTATIN. [Concomitant]
     Active Substance: PRAVASTATIN
  9. PROLIA [Concomitant]
     Active Substance: DENOSUMAB
  10. ABIRATERONE 250 MG TAB [Suspect]
     Active Substance: ABIRATERONE ACETATE
     Indication: PROSTATE CANCER
     Route: 048
  11. METOPROLOL. [Concomitant]
     Active Substance: METOPROLOL
  12. FUROSEMIDE. [Concomitant]
     Active Substance: FUROSEMIDE
  13. LORATADINE. [Concomitant]
     Active Substance: LORATADINE

REACTIONS (1)
  - Prostatic specific antigen increased [None]
